FAERS Safety Report 4982294-7 (Version None)
Quarter: 2006Q2

REPORT INFORMATION
  Report Type: 
  Country: None (occurrence: None)
  Receive Date: 20060424
  Receipt Date: 20060424
  Transmission Date: 20061013
  Serious: Yes (Other)
  Sender: FDA-Public Use
  Company Number: None

PATIENT
  Age: 51 Year
  Sex: Male
  Weight: 76 kg

DRUGS (2)
  1. ERBITUX [Suspect]
     Indication: PANCREATIC CARCINOMA
     Dosage: 792 MG LOADING DOSE IV DRIP
     Route: 042
     Dates: start: 20060419, end: 20060419
  2. ERBITUX [Suspect]

REACTIONS (1)
  - NO ADVERSE DRUG EFFECT [None]
